FAERS Safety Report 9426730 (Version 1)
Quarter: 2013Q3

REPORT INFORMATION
  Report Type: Spontaneous
  Country: US (occurrence: US)
  Receive Date: 20130730
  Receipt Date: 20130730
  Transmission Date: 20140515
  Serious: Yes (Other)
  Sender: FDA-Public Use
  Company Number: US-SANOFI-AVENTIS-2012SA055202

PATIENT
  Age: 52 Year
  Sex: Female

DRUGS (6)
  1. AMBIEN CR [Suspect]
     Indication: INSOMNIA
     Route: 048
     Dates: start: 2002
  2. AMBIEN CR [Suspect]
     Indication: DEPRESSION
     Route: 048
     Dates: start: 2002
  3. SOMA [Concomitant]
     Indication: INJURY
  4. TRAZODONE [Concomitant]
     Indication: DEPRESSION
  5. XANAX [Concomitant]
     Indication: ANXIETY
  6. NORCO [Concomitant]
     Indication: BACK INJURY

REACTIONS (8)
  - Impaired driving ability [Unknown]
  - Insomnia [Unknown]
  - Inappropriate schedule of drug administration [Unknown]
  - Fatigue [Unknown]
  - Off label use [Unknown]
  - Somnambulism [Unknown]
  - Dependence [Unknown]
  - Incorrect drug administration duration [Unknown]
